FAERS Safety Report 11649520 (Version 1)
Quarter: 2015Q4

REPORT INFORMATION
  Report Type: Spontaneous
  Country: US (occurrence: US)
  Receive Date: 20151021
  Receipt Date: 20151021
  Transmission Date: 20160304
  Serious: No
  Sender: FDA-Public Use
  Company Number: US-ASTRAZENECA-2015SE98700

PATIENT
  Sex: Male
  Weight: 79.4 kg

DRUGS (6)
  1. PULMICORT FLEXHALER [Suspect]
     Active Substance: BUDESONIDE
     Indication: ASTHMA
     Route: 055
  2. SYMBICORT [Suspect]
     Active Substance: BUDESONIDE\FORMOTEROL FUMARATE DIHYDRATE
     Indication: ASTHMA
     Dosage: 1 PUFF TWICE A DAY
     Route: 055
  3. ALBUTEROL. [Concomitant]
     Active Substance: ALBUTEROL
     Indication: ASTHMA
     Dosage: 1 PUFF TWICE A DAY
     Route: 055
     Dates: start: 1989
  4. FLONASE [Concomitant]
     Active Substance: FLUTICASONE PROPIONATE
     Indication: SINUS DISORDER
     Dosage: TWO TIMES A DAY
     Route: 045
     Dates: start: 1998
  5. FLOVENT [Concomitant]
     Active Substance: FLUTICASONE PROPIONATE
     Dosage: TWO TIMES A DAY
     Route: 055
  6. ZYRTEC [Concomitant]
     Active Substance: CETIRIZINE HYDROCHLORIDE
     Route: 048

REACTIONS (5)
  - Drug ineffective [Unknown]
  - Intentional product misuse [Recovered/Resolved]
  - Circumstance or information capable of leading to medication error [Unknown]
  - Lung disorder [Unknown]
  - Device malfunction [Unknown]
